FAERS Safety Report 20751256 (Version 3)
Quarter: 2022Q4

REPORT INFORMATION
  Report Type: Spontaneous
  Country: JP (occurrence: JP)
  Receive Date: 20220426
  Receipt Date: 20221205
  Transmission Date: 20230112
  Serious: Yes (Other)
  Sender: FDA-Public Use
  Company Number: 22_00018326(0)

PATIENT
  Age: 11 Year
  Sex: Male

DRUGS (29)
  1. DEXMEDETOMIDINE HYDROCHLORIDE [Suspect]
     Active Substance: DEXMEDETOMIDINE HYDROCHLORIDE
     Indication: Sedative therapy
     Dosage: 0.5 UG/KG/H
     Route: 065
  2. DEXMEDETOMIDINE HYDROCHLORIDE [Suspect]
     Active Substance: DEXMEDETOMIDINE HYDROCHLORIDE
     Dosage: 1.0 UG/KG/H
     Route: 065
  3. DEXMEDETOMIDINE HYDROCHLORIDE [Suspect]
     Active Substance: DEXMEDETOMIDINE HYDROCHLORIDE
     Dosage: 0.7 UG/KG/H
     Route: 065
  4. DEXMEDETOMIDINE HYDROCHLORIDE [Suspect]
     Active Substance: DEXMEDETOMIDINE HYDROCHLORIDE
     Dosage: 1.0 UG/KG/H
     Route: 065
  5. DEXMEDETOMIDINE HYDROCHLORIDE [Suspect]
     Active Substance: DEXMEDETOMIDINE HYDROCHLORIDE
     Dosage: 0.5 UG/KG/H
     Route: 065
  6. MIDAZOLAM [Suspect]
     Active Substance: MIDAZOLAM
     Indication: Sedative therapy
     Dosage: 0.13 MG/KG/H
     Route: 065
  7. MIDAZOLAM [Suspect]
     Active Substance: MIDAZOLAM
     Dosage: 0.21 MG/KG/H
     Route: 065
  8. MIDAZOLAM [Suspect]
     Active Substance: MIDAZOLAM
     Dosage: 0.26 MG/KG/H
     Route: 065
  9. MIDAZOLAM [Suspect]
     Active Substance: MIDAZOLAM
     Dosage: 0.2 MG/KG/H
     Route: 065
  10. MIDAZOLAM [Suspect]
     Active Substance: MIDAZOLAM
     Dosage: 0.06 MG/KG/H
     Route: 065
  11. MIDAZOLAM [Suspect]
     Active Substance: MIDAZOLAM
     Dosage: 0.2 MG/KG/H
     Route: 065
  12. FENTANYL [Suspect]
     Active Substance: FENTANYL
     Indication: Sedative therapy
     Dosage: 1 UG/KG/H
     Route: 065
  13. FENTANYL [Suspect]
     Active Substance: FENTANYL
     Dosage: 1.7 UG/KG/H
     Route: 065
  14. FENTANYL [Suspect]
     Active Substance: FENTANYL
     Dosage: 1.0 UG/KG/H
     Route: 065
  15. FENTANYL [Suspect]
     Active Substance: FENTANYL
     Dosage: 0.8 UG/KG/H
     Route: 065
  16. FENTANYL [Suspect]
     Active Substance: FENTANYL
     Dosage: 1.0 UG/KG/H
     Route: 065
  17. CHLORAL HYDRATE [Suspect]
     Active Substance: CHLORAL HYDRATE
     Indication: Sedative therapy
     Dosage: 44 MG/KG, QD
     Route: 065
  18. KETAMINE [Suspect]
     Active Substance: KETAMINE
     Indication: Sedative therapy
     Dosage: 0.5 MG/KG/H
     Route: 065
  19. KETAMINE [Suspect]
     Active Substance: KETAMINE
     Dosage: 0.65 MG/KG/H
     Route: 065
  20. KETAMINE [Suspect]
     Active Substance: KETAMINE
     Dosage: 0.3 MG/KG/H
     Route: 065
  21. KETAMINE [Suspect]
     Active Substance: KETAMINE
     Dosage: 0.4 MG/KG/H
     Route: 065
  22. MORPHINE [Suspect]
     Active Substance: MORPHINE
     Indication: Sedative therapy
     Dosage: 0.087 MG/KG/DOSE
     Route: 065
  23. DIAZEPAM [Suspect]
     Active Substance: DIAZEPAM
     Indication: Sedative therapy
     Dosage: 0.87 MG/DOSE, PRN
     Route: 048
  24. DIAZEPAM [Suspect]
     Active Substance: DIAZEPAM
     Dosage: 8 MILLIGRAM, QD
     Route: 048
  25. THIOPENTAL [Suspect]
     Active Substance: THIOPENTAL
     Indication: Sedative therapy
     Dosage: 5.5 MG/KG/DOSE
     Route: 065
  26. TRICLOFOS SODIUM [Suspect]
     Active Substance: TRICLOFOS SODIUM
     Indication: Product used for unknown indication
     Dosage: 260 MILLIGRAM/KILOGRAM, QD
     Route: 048
  27. CLONIDINE [Concomitant]
     Active Substance: CLONIDINE
     Indication: Product used for unknown indication
     Dosage: 13 UG/KG/DAY
     Route: 048
  28. CLONIDINE [Concomitant]
     Active Substance: CLONIDINE
     Dosage: 6.5 UG/KG/DAY
     Route: 048
  29. ROCURONIUM [Concomitant]
     Active Substance: ROCURONIUM BROMIDE
     Indication: Product used for unknown indication
     Dosage: 0.44 MG/KG/DOSE
     Route: 065

REACTIONS (1)
  - Withdrawal syndrome [Unknown]
